FAERS Safety Report 6168139-0 (Version None)
Quarter: 2009Q2

REPORT INFORMATION
  Report Type: 
  Country: None (occurrence: None)
  Receive Date: 20090423
  Receipt Date: 20090423
  Transmission Date: 20091009
  Serious: Yes (Other)
  Sender: FDA-Public Use
  Company Number: None

PATIENT
  Age: 69 Year
  Sex: Male
  Weight: 122.4712 kg

DRUGS (1)
  1. NEOSPORIN [Suspect]
     Indication: INFECTION PROPHYLAXIS
     Dosage: ABOUT A 1/4 TEASPOON TWICE A WEEK TOP
     Route: 061
     Dates: start: 20090227, end: 20090420

REACTIONS (3)
  - CONDITION AGGRAVATED [None]
  - ERYTHEMA [None]
  - PRODUCT QUALITY ISSUE [None]
